FAERS Safety Report 8513433-9 (Version None)
Quarter: 2012Q3

REPORT INFORMATION
  Report Type: 
  Country: None (occurrence: None)
  Receive Date: 20120717
  Receipt Date: 20120710
  Transmission Date: 20120928
  Serious: No
  Sender: FDA-Public Use
  Company Number: US-BIOGENIDEC-2011BI048860

PATIENT
  Age: 49 Year
  Sex: Female

DRUGS (1)
  1. TYSABRI [Suspect]
     Indication: MULTIPLE SCLEROSIS
     Route: 042
     Dates: start: 20111116, end: 20120627

REACTIONS (10)
  - DIZZINESS [None]
  - ASPARTATE AMINOTRANSFERASE INCREASED [None]
  - PYREXIA [None]
  - NEUTRALISING ANTIBODIES POSITIVE [None]
  - MYALGIA [None]
  - INFLUENZA LIKE ILLNESS [None]
  - FALL [None]
  - PRURITUS [None]
  - ALANINE AMINOTRANSFERASE INCREASED [None]
  - VOMITING [None]
